FAERS Safety Report 20694503 (Version 1)
Quarter: 2022Q2

REPORT INFORMATION
  Report Type: Spontaneous
  Country: FR (occurrence: FR)
  Receive Date: 20220411
  Receipt Date: 20220411
  Transmission Date: 20220721
  Serious: Yes (Hospitalization, Other)
  Sender: FDA-Public Use
  Company Number: None

PATIENT
  Age: 73 Year
  Sex: Female
  Weight: 168 kg

DRUGS (2)
  1. HYDROCHLOROTHIAZIDE\IRBESARTAN [Suspect]
     Active Substance: HYDROCHLOROTHIAZIDE\IRBESARTAN
     Indication: Myocardial infarction
     Dosage: 600 MG, 1X
     Route: 048
     Dates: start: 20220203, end: 20220203
  2. CLOPIDOGREL HYDROCHLORIDE [Concomitant]
     Active Substance: CLOPIDOGREL HYDROCHLORIDE
     Dosage: NOT ADMINISTERED

REACTIONS (4)
  - Hypovolaemic shock [Recovered/Resolved]
  - Hypotension [Recovered/Resolved]
  - Product name confusion [Recovered/Resolved]
  - Product administration error [Recovered/Resolved]
